FAERS Safety Report 21830895 (Version 1)
Quarter: 2023Q1

REPORT INFORMATION
  Report Type: Spontaneous
  Country: US (occurrence: None)
  Receive Date: 20230105
  Receipt Date: 20230105
  Transmission Date: 20230418
  Serious: Yes (Other)
  Sender: FDA-Public Use
  Company Number: None

PATIENT
  Age: 62 Year
  Sex: Male
  Weight: 99 kg

DRUGS (6)
  1. PANTOPRAZOLE SODIUM [Suspect]
     Active Substance: PANTOPRAZOLE SODIUM
     Route: 048
     Dates: start: 20221225, end: 20221230
  2. Rosuvistatin [Concomitant]
  3. BUTALBITAL [Concomitant]
     Active Substance: BUTALBITAL
  4. Candesartin [Concomitant]
  5. Metoprololfenofibrate [Concomitant]
  6. TUMS [Concomitant]
     Active Substance: CALCIUM CARBONATE

REACTIONS (11)
  - Dysphagia [None]
  - Neck pain [None]
  - Myalgia [None]
  - Discomfort [None]
  - Chest pain [None]
  - Abdominal pain [None]
  - Pain in extremity [None]
  - Pain [None]
  - Pain in extremity [None]
  - Adverse drug reaction [None]
  - Therapy interrupted [None]

NARRATIVE: CASE EVENT DATE: 20221230
